FAERS Safety Report 19496255 (Version 1)
Quarter: 2021Q3

REPORT INFORMATION
  Report Type: Spontaneous
  Country: US (occurrence: US)
  Receive Date: 20210702
  Receipt Date: 20210702
  Transmission Date: 20211014
  Serious: Yes (Other)
  Sender: FDA-Public Use
  Company Number: None

PATIENT
  Age: 70 Year
  Sex: Female
  Weight: 80 kg

DRUGS (1)
  1. OXANDROLONE. [Suspect]
     Active Substance: OXANDROLONE
     Indication: ANAEMIA
     Route: 048

REACTIONS (5)
  - Hyperparathyroidism [None]
  - Hypercalcaemia [None]
  - Septic shock [None]
  - Palliative care [None]
  - Acute kidney injury [None]

NARRATIVE: CASE EVENT DATE: 20210516
